FAERS Safety Report 9165538 (Version 3)
Quarter: 2013Q2

REPORT INFORMATION
  Report Type: Report from Study
  Country: IE (occurrence: IE)
  Receive Date: 20130315
  Receipt Date: 20130523
  Transmission Date: 20140414
  Serious: Yes (Disabling, Other)
  Sender: FDA-Public Use
  Company Number: IE-BAYER-2013-029241

PATIENT
  Age: 54 Year
  Sex: Male

DRUGS (1)
  1. NEXAVAR [Suspect]
     Indication: ADENOID CYSTIC CARCINOMA
     Dosage: 400 MG, BID
     Route: 048
     Dates: start: 20130218, end: 20130301

REACTIONS (6)
  - Swelling face [None]
  - Rash erythematous [None]
  - Muscle spasms [None]
  - Disorientation [None]
  - Nightmare [None]
  - Off label use [None]
